FAERS Safety Report 10467076 (Version 1)
Quarter: 2014Q3

REPORT INFORMATION
  Report Type: Spontaneous
  Country: PK (occurrence: PK)
  Receive Date: 20140922
  Receipt Date: 20140922
  Transmission Date: 20150326
  Serious: Yes (Other)
  Sender: FDA-Public Use
  Company Number: PHHY2014PK118648

PATIENT
  Age: 33 Year
  Sex: Female

DRUGS (3)
  1. METHYLDOPA. [Suspect]
     Active Substance: METHYLDOPA
     Dosage: 500 MG, TID
  2. SYNTOCINON [Suspect]
     Active Substance: OXYTOCIN
  3. ZINC SULFATE [Suspect]
     Active Substance: ZINC SULFATE\ZINC SULFATE ANHYDROUS
     Dosage: 30 MG, TID

REACTIONS (6)
  - Failed induction of labour [Unknown]
  - Pre-eclampsia [Unknown]
  - Portal hypertension [Unknown]
  - Proteinuria [Unknown]
  - Maternal exposure during pregnancy [Unknown]
  - Gestational diabetes [Unknown]
